FAERS Safety Report 9140814 (Version 1)
Quarter: 2013Q1

REPORT INFORMATION
  Report Type: Spontaneous
  Country: FR (occurrence: FR)
  Receive Date: 20130305
  Receipt Date: 20130305
  Transmission Date: 20140127
  Serious: Yes (Hospitalization, Other)
  Sender: FDA-Public Use
  Company Number: FR-009507513-2009SP035816

PATIENT
  Age: 54 Year
  Sex: Male
  Weight: 92 kg

DRUGS (6)
  1. ORGARAN [Suspect]
     Indication: HEPARIN-INDUCED THROMBOCYTOPENIA
     Dosage: 250 IU, QH
     Route: 042
     Dates: start: 20091027, end: 20091107
  2. ORGARAN [Suspect]
     Indication: ATRIAL FIBRILLATION
  3. DOBUTAMINE [Concomitant]
     Indication: CARDIAC FAILURE
     Route: 042
     Dates: start: 20090930
  4. LASILIX [Concomitant]
     Indication: CARDIAC FAILURE
     Route: 042
     Dates: start: 20090930
  5. DIGOXIN [Concomitant]
     Indication: CARDIAC FAILURE
     Dosage: 1 DF, UNK
     Route: 048
     Dates: start: 20091003
  6. ALDACTONE TABLETS [Concomitant]
     Indication: CARDIAC FAILURE
     Dosage: 25 MG, UNK
     Route: 048
     Dates: start: 20090930

REACTIONS (1)
  - Toxic skin eruption [Recovered/Resolved]
